FAERS Safety Report 5306970-1 (Version None)
Quarter: 2007Q2

REPORT INFORMATION
  Report Type: 
  Country: None (occurrence: None)
  Receive Date: 20070419
  Receipt Date: 20070412
  Transmission Date: 20071010
  Serious: Yes (Other)
  Sender: FDA-Public Use
  Company Number: SPV1-2007-02094

PATIENT
  Age: 11 Year
  Sex: Female

DRUGS (1)
  1. DAYTRANA [Suspect]
     Indication: ATTENTION DEFICIT/HYPERACTIVITY DISORDER
     Dosage: 10MG, TRANSDERMAL
     Route: 062
     Dates: start: 20070411

REACTIONS (2)
  - LOSS OF CONSCIOUSNESS [None]
  - MIGRAINE [None]
